FAERS Safety Report 16763761 (Version 3)
Quarter: 2019Q4

REPORT INFORMATION
  Report Type: Spontaneous
  Country: JP (occurrence: JP)
  Receive Date: 20190902
  Receipt Date: 20191003
  Transmission Date: 20200122
  Serious: Yes (Other)
  Sender: FDA-Public Use
  Company Number: JP-PFIZER INC-2019373773

PATIENT
  Age: 75 Year
  Sex: Female

DRUGS (4)
  1. LATANOPROST. [Suspect]
     Active Substance: LATANOPROST
     Indication: NORMAL TENSION GLAUCOMA
     Dosage: UNK (EYE DROPS)
     Dates: start: 2004
  2. BRIMONIDINE TARTRATE. [Suspect]
     Active Substance: BRIMONIDINE TARTRATE
     Indication: NORMAL TENSION GLAUCOMA
     Dosage: 1 GTT, 2X/DAY, EYE DROP WAS USED IN BOTH EYES
     Route: 047
     Dates: start: 2013
  3. LATANOPROST. [Suspect]
     Active Substance: LATANOPROST
     Dosage: UNK (EYE DROPS)
     Dates: start: 2013
  4. DORZOLAMIDE HYDROCHLORIDE AND TIMOLOL MALEATE [Suspect]
     Active Substance: DORZOLAMIDE HYDROCHLORIDE\TIMOLOL MALEATE
     Indication: NORMAL TENSION GLAUCOMA
     Dosage: UNK(1% DORZOLAMIDE HYDROCHLORIDE/0.5% TIMOLOL MALEATE FIXED COMBINATION)
     Dates: start: 2012

REACTIONS (8)
  - Corneal disorder [Recovering/Resolving]
  - Corneal infiltrates [Recovering/Resolving]
  - Corneal neovascularisation [Recovered/Resolved]
  - Conjunctivitis [Recovering/Resolving]
  - Corneal opacity [Not Recovered/Not Resolved]
  - Blepharitis [Recovered/Resolved]
  - Conjunctival hyperaemia [Recovering/Resolving]
  - Drug hypersensitivity [Recovering/Resolving]
